FAERS Safety Report 12899762 (Version 1)
Quarter: 2016Q4

REPORT INFORMATION
  Report Type: Spontaneous
  Country: US (occurrence: US)
  Receive Date: 20161031
  Receipt Date: 20161031
  Transmission Date: 20170207
  Serious: No
  Sender: FDA-Public Use
  Company Number: None

PATIENT
  Age: 72 Year
  Sex: Male
  Weight: 99 kg

DRUGS (11)
  1. ALLOUPINOL [Concomitant]
  2. METOPROLOL. [Concomitant]
     Active Substance: METOPROLOL
  3. CENTRUM SILVER [Concomitant]
     Active Substance: MINERALS\VITAMINS
  4. FURESMIDE [Concomitant]
  5. FISH OIL [Concomitant]
     Active Substance: FISH OIL
  6. TRULICITY [Suspect]
     Active Substance: DULAGLUTIDE
     Indication: DIABETES MELLITUS
     Dosage: QUANTITY:4 INJECTION(S);OTHER FREQUENCY:ONCE A WEEK; INTRAMUSCULAR ?
     Route: 030
     Dates: start: 20160121, end: 20160901
  7. JANTOVEN [Concomitant]
     Active Substance: WARFARIN SODIUM
  8. PRAVESTATIN [Concomitant]
  9. LANTUS [Concomitant]
     Active Substance: INSULIN GLARGINE
  10. HUMALOG [Concomitant]
     Active Substance: INSULIN LISPRO
  11. VITAMIN D3 [Concomitant]
     Active Substance: CHOLECALCIFEROL

REACTIONS (2)
  - Vomiting [None]
  - Chest pain [None]

NARRATIVE: CASE EVENT DATE: 20160901
